FAERS Safety Report 10499144 (Version 2)
Quarter: 2017Q4

REPORT INFORMATION
  Report Type: Spontaneous
  Country: US (occurrence: US)
  Receive Date: 20141006
  Receipt Date: 20171003
  Transmission Date: 20180320
  Serious: No
  Sender: FDA-Public Use
  Company Number: US-AMGEN INC.-USASP2014019750

PATIENT
  Age: 64 Year
  Sex: Female

DRUGS (7)
  1. CYTOXAN [Concomitant]
     Active Substance: CYCLOPHOSPHAMIDE
  2. VITAMIN D [Concomitant]
     Active Substance: CHOLECALCIFEROL
  3. NEULASTA [Concomitant]
     Active Substance: PEGFILGRASTIM
  4. XGEVA [Suspect]
     Active Substance: DENOSUMAB
     Indication: PROPHYLAXIS
     Dosage: UNK
     Route: 065
  5. TAXOTERE [Concomitant]
     Active Substance: DOCETAXEL
  6. XELODA [Concomitant]
     Active Substance: CAPECITABINE
  7. XGEVA [Suspect]
     Active Substance: DENOSUMAB
     Dosage: UNK
     Route: 065

REACTIONS (11)
  - Muscle spasms [Unknown]
  - Back pain [Unknown]
  - Skin discolouration [Unknown]
  - Rash pustular [Unknown]
  - Nail discolouration [Unknown]
  - Drug ineffective [Unknown]
  - Sciatic nerve injury [Unknown]
  - Wrong technique in product usage process [Unknown]
  - Sweat discolouration [Unknown]
  - Product storage error [Unknown]
  - Injection site haemorrhage [Unknown]
